FAERS Safety Report 17361375 (Version 2)
Quarter: 2020Q1

REPORT INFORMATION
  Report Type: Spontaneous
  Country: US (occurrence: US)
  Receive Date: 20200203
  Receipt Date: 20200211
  Transmission Date: 20200409
  Serious: No
  Sender: FDA-Public Use
  Company Number: US-PFIZER INC-2020042462

PATIENT
  Age: 58 Year

DRUGS (1)
  1. PREMARIN [Suspect]
     Active Substance: ESTROGENS, CONJUGATED
     Dosage: UNK

REACTIONS (6)
  - Hyperhidrosis [Unknown]
  - Condition aggravated [Unknown]
  - Feeling abnormal [Unknown]
  - Hormone level abnormal [Unknown]
  - Sleep disorder [Unknown]
  - Hot flush [Unknown]
